FAERS Safety Report 5716037-6 (Version None)
Quarter: 2008Q2

REPORT INFORMATION
  Report Type: 
  Country: None (occurrence: None)
  Receive Date: 20080422
  Receipt Date: 20070925
  Transmission Date: 20081010
  Serious: No
  Sender: FDA-Public Use
  Company Number: APP200700266

PATIENT

DRUGS (1)
  1. HEPARIN SODIUM [Suspect]
     Indication: DEEP VEIN THROMBOSIS

REACTIONS (1)
  - DRUG RESISTANCE [None]
